FAERS Safety Report 7892977-7 (Version None)
Quarter: 2011Q4

REPORT INFORMATION
  Report Type: 
  Country: None (occurrence: None)
  Receive Date: 20111104
  Receipt Date: 20111026
  Transmission Date: 20120403
  Serious: Yes (Hospitalization)
  Sender: FDA-Public Use
  Company Number: US-JNJFOC-20111011626

PATIENT
  Sex: Male
  Weight: 76.6 kg

DRUGS (2)
  1. REMICADE [Suspect]
     Indication: RHEUMATOID ARTHRITIS
     Route: 042
     Dates: start: 20090101, end: 20110601
  2. REMICADE [Suspect]
     Route: 042
     Dates: start: 20111001

REACTIONS (5)
  - HEART VALVE REPLACEMENT [None]
  - ABASIA [None]
  - THERAPEUTIC PRODUCT INEFFECTIVE [None]
  - PAIN [None]
  - OEDEMA PERIPHERAL [None]
